FAERS Safety Report 14977351 (Version 1)
Quarter: 2018Q2

REPORT INFORMATION
  Report Type: Report from Study
  Country: FR (occurrence: FR)
  Receive Date: 20180606
  Receipt Date: 20180606
  Transmission Date: 20180711
  Serious: Yes (Hospitalization)
  Sender: FDA-Public Use
  Company Number: FR-TEVA-2018-FR-902067

PATIENT
  Age: 12 Year
  Sex: Female
  Weight: 102 kg

DRUGS (7)
  1. ARIPIPRAZOLE. [Suspect]
     Active Substance: ARIPIPRAZOLE
     Indication: AGGRESSION
  2. LOXAPAC [Suspect]
     Active Substance: LOXAPINE
     Indication: HALLUCINATION
  3. ARIPIPRAZOLE. [Suspect]
     Active Substance: ARIPIPRAZOLE
     Indication: ABNORMAL BEHAVIOUR
     Dosage: 15 MILLIGRAM DAILY;
     Route: 048
     Dates: start: 20140805
  4. ARIPIPRAZOLE. [Suspect]
     Active Substance: ARIPIPRAZOLE
     Indication: DISINHIBITION
  5. LOXAPAC [Suspect]
     Active Substance: LOXAPINE
     Indication: ABNORMAL BEHAVIOUR
     Dosage: 50 GTT DAILY; 50 DROPS
     Route: 048
     Dates: start: 20140805
  6. ARIPIPRAZOLE. [Suspect]
     Active Substance: ARIPIPRAZOLE
     Indication: HALLUCINATION
  7. LOXAPAC [Suspect]
     Active Substance: LOXAPINE
     Indication: DISINHIBITION

REACTIONS (3)
  - Aggression [Unknown]
  - Off label use [Unknown]
  - Agitation [Unknown]

NARRATIVE: CASE EVENT DATE: 20141019
